FAERS Safety Report 8232398-0 (Version None)
Quarter: 2012Q1

REPORT INFORMATION
  Report Type: 
  Country: None (occurrence: None)
  Receive Date: 20120323
  Receipt Date: 20120319
  Transmission Date: 20120608
  Serious: Yes (Other)
  Sender: FDA-Public Use
  Company Number: JP-GLAXOSMITHKLINE-B0790623A

PATIENT
  Age: 61 Year
  Sex: Male
  Weight: 64 kg

DRUGS (3)
  1. UNKNOWN DRUG [Concomitant]
     Dosage: 20MG PER DAY
     Route: 048
  2. VALTREX [Suspect]
     Indication: HERPES ZOSTER
     Dosage: 3000MG PER DAY
     Route: 048
     Dates: start: 20110301, end: 20110305
  3. UNKNOWN DRUG [Concomitant]
     Indication: HYPERTENSION
     Dosage: 10MG PER DAY
     Route: 048

REACTIONS (5)
  - DYSURIA [None]
  - URINARY RETENTION [None]
  - RENAL TUBULAR DISORDER [None]
  - RENAL IMPAIRMENT [None]
  - RENAL DISORDER [None]
